FAERS Safety Report 21025893 (Version 2)
Quarter: 2022Q3

REPORT INFORMATION
  Report Type: Spontaneous
  Country: US (occurrence: US)
  Receive Date: 20220630
  Receipt Date: 20220701
  Transmission Date: 20221027
  Serious: No
  Sender: FDA-Public Use
  Company Number: US-SANOFI-01162565

PATIENT
  Age: 34 Year
  Sex: Female

DRUGS (1)
  1. DUPIXENT [Suspect]
     Active Substance: DUPILUMAB
     Indication: Nasal polyps
     Dosage: 300 MG, QOW
     Route: 058
     Dates: start: 20201009, end: 20220604

REACTIONS (2)
  - Maternal exposure during pregnancy [Unknown]
  - Product use in unapproved indication [Unknown]
